FAERS Safety Report 7151539-X (Version None)
Quarter: 2010Q4

REPORT INFORMATION
  Report Type: 
  Country: None (occurrence: None)
  Receive Date: 20101210
  Receipt Date: 20101130
  Transmission Date: 20110411
  Serious: Yes (Death, Other)
  Sender: FDA-Public Use
  Company Number: IL-ABBOTT-10P-082-0688468-00

PATIENT
  Age: 23 Year
  Sex: Female

DRUGS (6)
  1. VALPROIC ACID [Suspect]
     Indication: CONVULSION
     Dosage: 250 PLUS 125 MG/DAY
  2. VALPROIC ACID [Suspect]
     Indication: PERIPHERAL SENSORY NEUROPATHY
  3. AMIODARONE [Concomitant]
     Indication: PRODUCT USED FOR UNKNOWN INDICATION
     Dosage: 0.5 MG/MIN
  4. PROPOFOL [Concomitant]
     Indication: ANAESTHESIA
     Dosage: 2-4 MG/KG/HR
  5. REMIFENTANIL [Concomitant]
     Indication: PRODUCT USED FOR UNKNOWN INDICATION
  6. FENTANYL CITRATE [Concomitant]
     Indication: PRODUCT USED FOR UNKNOWN INDICATION

REACTIONS (3)
  - ACUTE HEPATIC FAILURE [None]
  - MENINGITIS [None]
  - PNEUMONIA [None]
